FAERS Safety Report 11867127 (Version 2)
Quarter: 2016Q4

REPORT INFORMATION
  Report Type: Spontaneous
  Country: US (occurrence: US)
  Receive Date: 20151224
  Receipt Date: 20161229
  Transmission Date: 20170206
  Serious: Yes (Death, Hospitalization, Other)
  Sender: FDA-Public Use
  Company Number: US-SUN PHARMACEUTICAL INDUSTRIES LTD-2015US-108629

PATIENT
  Age: 66 Year
  Sex: Female

DRUGS (1)
  1. PARACETAMOL [Suspect]
     Active Substance: ACETAMINOPHEN
     Indication: PAIN
     Dosage: APPROXIMATELY 14G DAILY
     Route: 065

REACTIONS (3)
  - Methaemoglobinaemia [Fatal]
  - Overdose [Fatal]
  - Cardiac arrest [Fatal]
